FAERS Safety Report 8815541 (Version 2)
Quarter: 2013Q2

REPORT INFORMATION
  Report Type: Spontaneous
  Country: GB (occurrence: GB)
  Receive Date: 20120928
  Receipt Date: 20130522
  Transmission Date: 20140414
  Serious: Yes (Other)
  Sender: FDA-Public Use
  Company Number: GB-GLAXOSMITHKLINE-A0995463A

PATIENT
  Sex: Male

DRUGS (2)
  1. NICOTINE GUM [Suspect]
     Route: 002
  2. NICOTINE PATCH UNKNOWN BRAND [Suspect]
     Route: 062

REACTIONS (3)
  - Myocardial infarction [Unknown]
  - Headache [Unknown]
  - Rash [Unknown]
